FAERS Safety Report 20189455 (Version 1)
Quarter: 2021Q4

REPORT INFORMATION
  Report Type: Spontaneous
  Country: AR (occurrence: AR)
  Receive Date: 20211215
  Receipt Date: 20211215
  Transmission Date: 20220303
  Serious: No
  Sender: FDA-Public Use
  Company Number: AR-PFIZER INC-202101102922

PATIENT
  Age: 12 Year
  Sex: Male

DRUGS (1)
  1. GENOTROPIN [Suspect]
     Active Substance: SOMATROPIN
     Indication: Growth hormone deficiency
     Dosage: 0.6 TO 1.0 MG SEVEN TIMES PER WEEK
     Dates: start: 20191008

REACTIONS (5)
  - Drug ineffective [Unknown]
  - Injection site pain [Unknown]
  - Poor quality device used [Unknown]
  - Product physical issue [Unknown]
  - Device mechanical issue [Unknown]
